FAERS Safety Report 6077922-1 (Version None)
Quarter: 2009Q1

REPORT INFORMATION
  Report Type: 
  Country: None (occurrence: None)
  Receive Date: 20090213
  Receipt Date: 20090205
  Transmission Date: 20090719
  Serious: Yes (Death, Life-Threatening, Hospitalization)
  Sender: FDA-Public Use
  Company Number: HK-ROCHE-600023

PATIENT
  Sex: Male
  Weight: 71.4 kg

DRUGS (11)
  1. CAPECITABINE [Suspect]
     Dosage: FREQUENCY REPORTED AS DAY 1 TO DAY 14 OF THREE WEEK CYCLE.
     Route: 048
     Dates: start: 20080908, end: 20081129
  2. CAPECITABINE [Suspect]
     Dosage: FREQUENCY : DAY 2-15 BID
     Route: 048
  3. ERLOTINIB [Suspect]
     Dosage: FREQUENCY REPORTED AS DAY 1 TO DAY 14 AT ALTERNATE DAY AND ON DAY 15 TO DAY21 DAILY.
     Route: 048
     Dates: start: 20080908
  4. ERLOTINIB [Suspect]
     Route: 048
     Dates: start: 20081121, end: 20081128
  5. OXALIPLATIN [Suspect]
     Dosage: FORM REPORTED AS IV INFUSION. TEMPORARILY INTERRUPTED.
     Route: 042
     Dates: start: 20080908
  6. OXALIPLATIN [Suspect]
     Route: 042
     Dates: start: 20081121, end: 20081128
  7. OXALIPLATIN [Suspect]
     Route: 042
     Dates: end: 20081129
  8. ALLOPURINOL [Concomitant]
  9. ATENOLOL [Concomitant]
  10. PEPCIDINE [Concomitant]
  11. NAPROXEN [Concomitant]
     Dates: start: 20081107

REACTIONS (6)
  - ABDOMINAL SEPSIS [None]
  - CARDIAC ARREST [None]
  - DIARRHOEA [None]
  - INTESTINAL OBSTRUCTION [None]
  - INTESTINAL PERFORATION [None]
  - PNEUMONIA ASPIRATION [None]
